FAERS Safety Report 9259391 (Version 1)
Quarter: 2013Q2

REPORT INFORMATION
  Report Type: Spontaneous
  Country: US (occurrence: US)
  Receive Date: 20130428
  Receipt Date: 20130428
  Transmission Date: 20140414
  Serious: Yes (Other)
  Sender: FDA-Public Use
  Company Number: US-BAYER-2013-050180

PATIENT
  Sex: Female

DRUGS (1)
  1. ALEVE TABLET [Suspect]
     Dosage: ON
     Route: 048
     Dates: start: 20130416, end: 20130416

REACTIONS (19)
  - Blood pressure decreased [Recovered/Resolved]
  - Swelling face [Recovered/Resolved]
  - Swollen tongue [Recovered/Resolved]
  - Pruritus [Recovered/Resolved]
  - Erythema [Recovered/Resolved]
  - Urticaria [Recovered/Resolved]
  - Dizziness [Recovered/Resolved]
  - Feeling abnormal [Recovered/Resolved]
  - Pruritus [Recovered/Resolved]
  - Blood pressure decreased [None]
  - Swelling face [None]
  - Swollen tongue [None]
  - Pruritus [None]
  - Erythema [None]
  - Urticaria [None]
  - Dizziness [None]
  - Feeling abnormal [None]
  - Hypersensitivity [None]
  - Pruritus [None]
